FAERS Safety Report 11793771 (Version 1)
Quarter: 2015Q4

REPORT INFORMATION
  Report Type: Spontaneous
  Country: US (occurrence: None)
  Receive Date: 20151201
  Receipt Date: 20151201
  Transmission Date: 20160305
  Serious: No
  Sender: FDA-Public Use
  Company Number: None

PATIENT
  Age: 65 Year
  Sex: Male

DRUGS (7)
  1. HYDROCHLOROTHIAZIDE. [Concomitant]
     Active Substance: HYDROCHLOROTHIAZIDE
  2. COQ10 [Suspect]
     Active Substance: UBIDECARENONE
  3. ACEBUTOLOL [Concomitant]
     Active Substance: ACEBUTOLOL
  4. SULFAMETHOXAZOLE-TMP DS 800-160MG AUROBINDO PHA [Suspect]
     Active Substance: SULFAMETHOXAZOLE\TRIMETHOPRIM
     Indication: PROPHYLAXIS
     Route: 048
     Dates: start: 20151124, end: 20151128
  5. CALCIUM CITRATE [Concomitant]
     Active Substance: CALCIUM CITRATE
  6. AMLODIPINE [Concomitant]
     Active Substance: AMLODIPINE BESYLATE
  7. POTASSIUM [Concomitant]
     Active Substance: POTASSIUM

REACTIONS (1)
  - Nausea [None]

NARRATIVE: CASE EVENT DATE: 20151124
